FAERS Safety Report 7240360-X (Version None)
Quarter: 2011Q1

REPORT INFORMATION
  Report Type: 
  Country: None (occurrence: None)
  Receive Date: 20110124
  Receipt Date: 20110113
  Transmission Date: 20110831
  Serious: Yes (Disabling, Other)
  Sender: FDA-Public Use
  Company Number: BE-BAXTER-2011BH001211

PATIENT
  Age: 61 Year
  Sex: Male
  Weight: 84 kg

DRUGS (5)
  1. FOLIC ACID [Concomitant]
     Indication: RHEUMATOID ARTHRITIS
     Dates: end: 20091101
  2. GAMMAGARD S/D [Suspect]
     Route: 065
     Dates: start: 20091101
  3. EMCORETIC [Concomitant]
     Indication: HYPERTENSION
     Route: 048
     Dates: start: 20081128
  4. CRESTOR [Concomitant]
     Indication: BLOOD CHOLESTEROL INCREASED
     Route: 048
     Dates: start: 20081128
  5. GAMMAGARD S/D [Suspect]
     Indication: PRIMARY IMMUNODEFICIENCY SYNDROME
     Route: 042
     Dates: start: 20100309, end: 20100309

REACTIONS (9)
  - NEURALGIC AMYOTROPHY [None]
  - ORAL FUNGAL INFECTION [None]
  - WEIGHT DECREASED [None]
  - PERIPHERAL COLDNESS [None]
  - DEPRESSION [None]
  - PSORIASIS [None]
  - PARAESTHESIA [None]
  - STEVENS-JOHNSON SYNDROME [None]
  - ERYTHEMA [None]
